FAERS Safety Report 8657537 (Version 5)
Quarter: 2012Q4

REPORT INFORMATION
  Report Type: Report from Study
  Country: GB (occurrence: GB)
  Receive Date: 20120710
  Receipt Date: 20121119
  Transmission Date: 20130627
  Serious: Yes (Hospitalization)
  Sender: FDA-Public Use
  Company Number: GB-JNJFOC-20120700573

PATIENT
  Age: 17 Year
  Sex: Female
  Weight: 55.3 kg

DRUGS (1)
  1. REMICADE [Suspect]
     Indication: CROHN^S DISEASE
     Route: 042
     Dates: start: 20070508, end: 20120607

REACTIONS (1)
  - Crohn^s disease [Recovered/Resolved]
